FAERS Safety Report 8305418-2 (Version None)
Quarter: 2012Q2

REPORT INFORMATION
  Report Type: 
  Country: None (occurrence: None)
  Receive Date: 20120423
  Receipt Date: 20120417
  Transmission Date: 20120825
  Serious: Yes (Hospitalization, Other)
  Sender: FDA-Public Use
  Company Number: PHHY2012US032491

PATIENT
  Age: 74 Year
  Sex: Female

DRUGS (4)
  1. AMOXICILLIN [Concomitant]
     Indication: HELICOBACTER INFECTION
  2. OMEPRAZOLE [Concomitant]
     Indication: HELICOBACTER INFECTION
  3. SIMVASTATIN [Suspect]
  4. CLARITHROMYCIN [Interacting]
     Indication: HELICOBACTER INFECTION

REACTIONS (5)
  - MUSCULAR WEAKNESS [None]
  - ABASIA [None]
  - RHABDOMYOLYSIS [None]
  - FALL [None]
  - DRUG INTERACTION [None]
